FAERS Safety Report 18471242 (Version 1)
Quarter: 2020Q4

REPORT INFORMATION
  Report Type: Spontaneous
  Country: US (occurrence: US)
  Receive Date: 20201105
  Receipt Date: 20201105
  Transmission Date: 20210114
  Serious: Yes (Other)
  Sender: FDA-Public Use
  Company Number: US-PURDUE-USA-2020-0166363

PATIENT
  Sex: Male

DRUGS (1)
  1. OXYCONTIN [Suspect]
     Active Substance: OXYCODONE HYDROCHLORIDE
     Indication: PAIN
     Dosage: UNK
     Route: 048

REACTIONS (7)
  - Dependence [Unknown]
  - Injury [Unknown]
  - Road traffic accident [Unknown]
  - Ligament rupture [Unknown]
  - Weight increased [Unknown]
  - Drug abuse [Unknown]
  - Pain [Unknown]

NARRATIVE: CASE EVENT DATE: 2010
